FAERS Safety Report 19399975 (Version 1)
Quarter: 2021Q2

REPORT INFORMATION
  Report Type: Spontaneous
  Country: US (occurrence: US)
  Receive Date: 20210610
  Receipt Date: 20210610
  Transmission Date: 20210717
  Serious: No
  Sender: FDA-Public Use
  Company Number: US-MYLANLABS-2021M1030909

PATIENT
  Age: 84 Year
  Sex: Male
  Weight: 74 kg

DRUGS (2)
  1. YUPELRI [Suspect]
     Active Substance: REVEFENACIN
     Indication: CHRONIC OBSTRUCTIVE PULMONARY DISEASE
     Dosage: 175 MILLIGRAM, QD
     Route: 055
     Dates: start: 20210525
  2. YUPELRI [Suspect]
     Active Substance: REVEFENACIN
     Indication: BRONCHITIS CHRONIC

REACTIONS (1)
  - Off label use [Not Recovered/Not Resolved]

NARRATIVE: CASE EVENT DATE: 20210525
